FAERS Safety Report 21008906 (Version 1)
Quarter: 2022Q2

REPORT INFORMATION
  Report Type: Spontaneous
  Country: US (occurrence: US)
  Receive Date: 20220627
  Receipt Date: 20220627
  Transmission Date: 20220720
  Serious: No
  Sender: FDA-Public Use
  Company Number: US-ELI_LILLY_AND_COMPANY-US202206012283

PATIENT
  Age: 49 Year
  Sex: Female

DRUGS (1)
  1. TALTZ [Suspect]
     Active Substance: IXEKIZUMAB
     Indication: Psoriasis
     Dosage: 160 MG, SINGLE(LOADING DOSE)
     Route: 058
     Dates: start: 202205

REACTIONS (3)
  - Injection site pruritus [Unknown]
  - Injection site mass [Unknown]
  - Injection site rash [Unknown]

NARRATIVE: CASE EVENT DATE: 20220601
